FAERS Safety Report 5984587-3 (Version None)
Quarter: 2008Q4

REPORT INFORMATION
  Report Type: 
  Country: None (occurrence: None)
  Receive Date: 20081202
  Receipt Date: 20081119
  Transmission Date: 20090506
  Serious: Yes (Hospitalization)
  Sender: FDA-Public Use
  Company Number: 2008-187087-NL

PATIENT
  Age: 46 Year
  Sex: Female

DRUGS (4)
  1. DANAPAROID SODIUM [Suspect]
     Indication: THROMBOSIS
     Dosage: DF INTRAVENOUS (NOS)
     Route: 042
  2. ACETYLSALICYLIC ACID SRT [Concomitant]
  3. ALPROSTADIL [Concomitant]
  4. ANALGESICS [Concomitant]

REACTIONS (6)
  - BLOOD CREATINE PHOSPHOKINASE INCREASED [None]
  - DISEASE RECURRENCE [None]
  - EMBOLISM VENOUS [None]
  - HAEMOGLOBIN DECREASED [None]
  - PARESIS [None]
  - VAGINAL HAEMORRHAGE [None]
